FAERS Safety Report 9637390 (Version 2)
Quarter: 2013Q4

REPORT INFORMATION
  Report Type: Spontaneous
  Country: JP (occurrence: JP)
  Receive Date: 20131022
  Receipt Date: 20131022
  Transmission Date: 20140711
  Serious: Yes (Other)
  Sender: FDA-Public Use
  Company Number: PHHY2013JP096629

PATIENT
  Age: 71 Year
  Sex: Male

DRUGS (3)
  1. ZOMETA [Suspect]
     Indication: METASTASES TO BONE
     Dosage: 4 MG, PER ADMINISTRATION
     Route: 041
     Dates: start: 20110127, end: 20130904
  2. DOCETAXEL [Concomitant]
     Dosage: UNK UKN, UNK
     Dates: start: 201208, end: 201209
  3. ZOLADEX [Concomitant]
     Dosage: UNK UKN, UNK

REACTIONS (4)
  - Osteonecrosis of jaw [Not Recovered/Not Resolved]
  - Pain in jaw [Not Recovered/Not Resolved]
  - Gingival bleeding [Not Recovered/Not Resolved]
  - Aphagia [Unknown]
